FAERS Safety Report 9705774 (Version 1)
Quarter: 2013Q4

REPORT INFORMATION
  Report Type: Spontaneous
  Country: US (occurrence: US)
  Receive Date: 20131122
  Receipt Date: 20131122
  Transmission Date: 20140711
  Serious: No
  Sender: FDA-Public Use
  Company Number: US-GILEAD-2008-0018084

PATIENT
  Sex: Female
  Weight: 131.54 kg

DRUGS (11)
  1. LETAIRIS [Suspect]
     Indication: PULMONARY ARTERIAL HYPERTENSION
     Route: 048
     Dates: start: 20080619
  2. OXYGEN [Concomitant]
  3. SINGULAIR [Concomitant]
  4. MULTIVITAMIN [Concomitant]
  5. VERAPAMIL [Concomitant]
  6. COUMADIN [Concomitant]
  7. ALISKIREN [Concomitant]
  8. MAG-OX [Concomitant]
  9. NOVOLOG [Concomitant]
  10. FOLBEE [Concomitant]
  11. PREDNISONE [Concomitant]
     Route: 048

REACTIONS (1)
  - Migraine [Unknown]
